APPROVED DRUG PRODUCT: LO/OVRAL
Active Ingredient: ETHINYL ESTRADIOL; NORGESTREL
Strength: 0.03MG;0.3MG
Dosage Form/Route: TABLET;ORAL-21
Application: N017612 | Product #001
Applicant: CADENCE HEALTH
Approved: Approved Prior to Jan 1, 1982 | RLD: Yes | RS: No | Type: DISCN